FAERS Safety Report 4751833-3 (Version None)
Quarter: 2005Q3

REPORT INFORMATION
  Report Type: 
  Country: None (occurrence: None)
  Receive Date: 20050822
  Receipt Date: 20050720
  Transmission Date: 20060218
  Serious: No
  Sender: FDA-Public Use
  Company Number: PHEH2005US08045

PATIENT
  Age: 70 Year
  Sex: Female

DRUGS (8)
  1. ZELNORM [Suspect]
     Indication: DIABETIC GASTROPARESIS
     Dosage: 6 MG, BID, ORAL
     Route: 048
     Dates: start: 20050715
  2. AMARYL [Concomitant]
  3. AVAPRO [Concomitant]
  4. ZYRTEC [Concomitant]
  5. COLACE (DOCUSATE SODIUM) [Concomitant]
  6. EVISTA [Concomitant]
  7. BETAGAN [Concomitant]
  8. CRESTOR [Concomitant]

REACTIONS (2)
  - ABDOMINAL PAIN [None]
  - CONSTIPATION [None]
